FAERS Safety Report 5463866-2 (Version None)
Quarter: 2007Q3

REPORT INFORMATION
  Report Type: 
  Country: None (occurrence: None)
  Receive Date: 20070820
  Receipt Date: 20070510
  Transmission Date: 20080115
  Serious: No
  Sender: FDA-Public Use
  Company Number: US-1162922

PATIENT
  Age: 60 Year
  Sex: Female

DRUGS (1)
  1. NEVANAC [Suspect]
     Indication: PROPHYLAXIS
     Dosage: OPHTHALMIC
     Route: 047

REACTIONS (3)
  - EYE INFLAMMATION [None]
  - LENTICULAR OPACITIES [None]
  - MACULOPATHY [None]
